FAERS Safety Report 23702755 (Version 1)
Quarter: 2024Q2

REPORT INFORMATION
  Report Type: Spontaneous
  Country: CN (occurrence: CN)
  Receive Date: 20240403
  Receipt Date: 20240403
  Transmission Date: 20240716
  Serious: Yes (Other)
  Sender: FDA-Public Use
  Company Number: CN-JNJFOC-20240378272

PATIENT
  Age: 4 Decade
  Sex: Male

DRUGS (2)
  1. IBUPROFEN [Suspect]
     Active Substance: IBUPROFEN
     Indication: Nasopharyngitis
     Route: 065
  2. BOS TAURUS GALLSTONE\CHLORPHENIRAMINE MALEATE\DICLOFENAC SODIUM [Suspect]
     Active Substance: BOS TAURUS GALLSTONE\CHLORPHENIRAMINE MALEATE\DICLOFENAC SODIUM
     Indication: Nasopharyngitis
     Route: 065

REACTIONS (5)
  - Acute hepatic failure [Recovering/Resolving]
  - Product administered to patient of inappropriate age [Recovering/Resolving]
  - Product administration error [Recovering/Resolving]
  - Acute kidney injury [Recovering/Resolving]
  - Overdose [Unknown]
